FAERS Safety Report 23587395 (Version 3)
Quarter: 2025Q3

REPORT INFORMATION
  Report Type: Spontaneous
  Country: EU (occurrence: EU)
  Receive Date: 20240301
  Receipt Date: 20250718
  Transmission Date: 20251021
  Serious: Yes (Hospitalization, Other)
  Sender: BEIGENE
  Company Number: EU-BEIGENE-BGN-2024-003067

PATIENT
  Age: 45 Year

DRUGS (2)
  1. BRUKINSA [Suspect]
     Active Substance: ZANUBRUTINIB
     Indication: Waldenstrom^s macroglobulinaemia
  2. BRUKINSA [Suspect]
     Active Substance: ZANUBRUTINIB

REACTIONS (6)
  - Respiratory failure [Recovering/Resolving]
  - Endotracheal intubation [Unknown]
  - Dyspnoea [Recovering/Resolving]
  - Dysphagia [Unknown]
  - Inflammatory marker increased [Unknown]
  - Condition aggravated [Unknown]
